FAERS Safety Report 4750634-X (Version None)
Quarter: 2005Q3

REPORT INFORMATION
  Report Type: 
  Country: None (occurrence: None)
  Receive Date: 20050823
  Receipt Date: 20050815
  Transmission Date: 20060218
  Serious: Yes (Hospitalization, Other)
  Sender: FDA-Public Use
  Company Number: PHBS2005IL11891

PATIENT
  Age: 32 Year
  Sex: Male

DRUGS (3)
  1. CYCLOSPORINE [Suspect]
     Indication: MYASTHENIA GRAVIS
  2. STEROIDS NOS [Suspect]
  3. MYCOPHENOLATE MOFETIL [Suspect]
     Indication: MYASTHENIA GRAVIS
     Dosage: 0.5 G/D
     Route: 048

REACTIONS (9)
  - ACANTHOSIS [None]
  - DIABETES MELLITUS NON-INSULIN-DEPENDENT [None]
  - HYPERKERATOSIS [None]
  - HYPERTENSION [None]
  - OBESITY [None]
  - RASH [None]
  - RASH GENERALISED [None]
  - RASH PAPULOSQUAMOUS [None]
  - SKIN OEDEMA [None]
